FAERS Safety Report 7657164-6 (Version None)
Quarter: 2011Q3

REPORT INFORMATION
  Report Type: 
  Country: None (occurrence: None)
  Receive Date: 20110804
  Receipt Date: 20110715
  Transmission Date: 20111222
  Serious: Yes (Disabling, Other)
  Sender: FDA-Public Use
  Company Number: PHHY2011US52737

PATIENT
  Sex: Female

DRUGS (2)
  1. EXJADE [Suspect]
     Indication: HEREDITARY HAEMOCHROMATOSIS
     Dosage: 1750 MG, UNK
     Route: 048
  2. EXJADE [Suspect]
     Dosage: 20 MG/KG (875 MG), DAILY
     Route: 048
     Dates: start: 20110501, end: 20110601

REACTIONS (3)
  - CEREBROVASCULAR ACCIDENT [None]
  - DYSGRAPHIA [None]
  - DIARRHOEA [None]
